FAERS Safety Report 6903588-1 (Version None)
Quarter: 2010Q3

REPORT INFORMATION
  Report Type: 
  Country: None (occurrence: None)
  Receive Date: 20100803
  Receipt Date: 20081031
  Transmission Date: 20110219
  Serious: No
  Sender: FDA-Public Use
  Company Number: US-PFIZER INC-2008053073

PATIENT
  Sex: Male
  Weight: 86.3 kg

DRUGS (4)
  1. LYRICA [Suspect]
     Indication: NEURALGIA
     Dates: start: 20070101
  2. TESTOSTERONE [Concomitant]
  3. ALL OTHER THERAPEUTIC PRODUCTS [Concomitant]
  4. LEXAPRO [Concomitant]

REACTIONS (7)
  - BLOOD TESTOSTERONE DECREASED [None]
  - DISTURBANCE IN ATTENTION [None]
  - DRUG INEFFECTIVE [None]
  - MALE SEXUAL DYSFUNCTION [None]
  - PHOTOPHOBIA [None]
  - VISION BLURRED [None]
  - VISUAL IMPAIRMENT [None]
